FAERS Safety Report 22517797 (Version 4)
Quarter: 2024Q1

REPORT INFORMATION
  Report Type: Spontaneous
  Country: US (occurrence: US)
  Receive Date: 20230604
  Receipt Date: 20240331
  Transmission Date: 20240409
  Serious: No
  Sender: FDA-Public Use
  Company Number: US-VIIV HEALTHCARE LIMITED-US2023077615

PATIENT
  Age: 30 Year
  Sex: Female

DRUGS (2)
  1. RILPIVIRINE [Suspect]
     Active Substance: RILPIVIRINE
     Indication: HIV infection
     Dosage: UNK (600MG- 900MG)
     Route: 065
     Dates: start: 20221123
  2. CABOTEGRAVIR [Suspect]
     Active Substance: CABOTEGRAVIR
     Indication: HIV infection
     Dosage: UNK (600MG- 900MG)
     Route: 065
     Dates: start: 20221123

REACTIONS (2)
  - Exposure during pregnancy [Recovered/Resolved]
  - Live birth [Unknown]
